FAERS Safety Report 17021213 (Version 1)
Quarter: 2019Q4

REPORT INFORMATION
  Report Type: Spontaneous
  Country: US (occurrence: US)
  Receive Date: 20191111
  Receipt Date: 20191111
  Transmission Date: 20200122
  Serious: Yes (Death)
  Sender: FDA-Public Use
  Company Number: None

PATIENT
  Age: 82 Year
  Sex: Male
  Weight: 95 kg

DRUGS (4)
  1. GIAPREZA [Suspect]
     Active Substance: ANGIOTENSIN II
     Indication: HYPOTENSION
     Dosage: ?          OTHER FREQUENCY:80 NG/HR;?
     Route: 041
     Dates: start: 20191101, end: 20191101
  2. PROPOFOL. [Concomitant]
     Active Substance: PROPOFOL
     Dates: start: 20191101, end: 20191101
  3. VASOPRESSIN. [Concomitant]
     Active Substance: VASOPRESSIN
     Dates: start: 20191101, end: 20191101
  4. NOREPINEPHRINE. [Concomitant]
     Active Substance: NOREPINEPHRINE
     Dates: start: 20191101, end: 20191101

REACTIONS (2)
  - Pulmonary embolism [None]
  - Cardiac arrest [None]

NARRATIVE: CASE EVENT DATE: 20191101
